FAERS Safety Report 9807747 (Version 1)
Quarter: 2014Q1

REPORT INFORMATION
  Report Type: Spontaneous
  Country: US (occurrence: US)
  Receive Date: 20140110
  Receipt Date: 20140110
  Transmission Date: 20141002
  Serious: Yes (Death)
  Sender: FDA-Public Use
  Company Number: US-ASTRAZENECA-2014SE01996

PATIENT
  Age: 53 Year
  Sex: Female

DRUGS (8)
  1. QUETIAPINE [Suspect]
     Route: 048
  2. DIAZEPAM [Suspect]
     Route: 048
  3. FENTANYL [Suspect]
     Route: 048
  4. ZOLPIDEM [Suspect]
     Route: 048
  5. ACETAMINOPHEN (NON AZ PRODUCT) [Suspect]
     Route: 048
  6. HYDROCODONE [Suspect]
     Route: 048
  7. TRAZODONE [Suspect]
     Route: 048
  8. COCAINE [Suspect]
     Route: 048

REACTIONS (2)
  - Toxicity to various agents [Fatal]
  - Completed suicide [Fatal]
